FAERS Safety Report 7957914-5 (Version None)
Quarter: 2011Q4

REPORT INFORMATION
  Report Type: 
  Country: None (occurrence: None)
  Receive Date: 20111201
  Receipt Date: 20111122
  Transmission Date: 20120403
  Serious: Yes (Death)
  Sender: FDA-Public Use
  Company Number: 2011DE0344

PATIENT
  Sex: Male

DRUGS (1)
  1. KINERET [Suspect]
     Indication: STILL'S DISEASE ADULT ONSET

REACTIONS (1)
  - ACUTE HEPATIC FAILURE [None]
